FAERS Safety Report 20682939 (Version 1)
Quarter: 2022Q2

REPORT INFORMATION
  Report Type: Spontaneous
  Country: CA (occurrence: CA)
  Receive Date: 20220407
  Receipt Date: 20220407
  Transmission Date: 20220721
  Serious: Yes (Life-Threatening, Other)
  Sender: FDA-Public Use
  Company Number: CA-TEVA-2022-CA-2023859

PATIENT
  Age: 5 Year
  Sex: Male
  Weight: 18 kg

DRUGS (39)
  1. FLUDARABINE [Suspect]
     Active Substance: FLUDARABINE PHOSPHATE
     Indication: Bone marrow conditioning regimen
     Route: 042
  2. FLUDARABINE [Suspect]
     Active Substance: FLUDARABINE PHOSPHATE
     Route: 042
  3. CYCLOPHOSPHAMIDE [Suspect]
     Active Substance: CYCLOPHOSPHAMIDE
     Indication: Bone marrow conditioning regimen
     Route: 042
  4. MELPHALAN [Suspect]
     Active Substance: MELPHALAN
     Indication: Bone marrow conditioning regimen
     Route: 042
  5. RITUXAN [Suspect]
     Active Substance: RITUXIMAB
     Indication: Bone marrow conditioning regimen
     Route: 042
  6. THIOTEPA [Suspect]
     Active Substance: THIOTEPA
     Indication: Bone marrow conditioning regimen
     Route: 042
  7. ACETAMINOPHEN [Concomitant]
     Active Substance: ACETAMINOPHEN
  8. ACYCLOVIR [Concomitant]
     Active Substance: ACYCLOVIR
  9. ALTEPLASE [Concomitant]
     Active Substance: ALTEPLASE
  10. AMLODIPINE [Concomitant]
     Active Substance: AMLODIPINE BESYLATE
     Route: 065
  11. AMPHOTERICIN B [Concomitant]
     Active Substance: AMPHOTERICIN B
  12. CALCIUM\CHOLECALCIFEROL [Concomitant]
     Active Substance: CALCIUM\CHOLECALCIFEROL
     Route: 065
  13. CEFTAZIDIME [Concomitant]
     Active Substance: CEFTAZIDIME
  14. CETIRIZINE [Concomitant]
     Active Substance: CETIRIZINE HYDROCHLORIDE
     Route: 065
  15. DEXAMETHASONE [Concomitant]
     Active Substance: DEXAMETHASONE
     Route: 065
  16. DIMENHYDRINATE [Concomitant]
     Active Substance: DIMENHYDRINATE
  17. DIPHENHYDRAMINE [Concomitant]
     Active Substance: DIPHENHYDRAMINE
  18. EPINEPHRINE [Concomitant]
     Active Substance: EPINEPHRINE
  19. FAMOTIDINE [Concomitant]
     Active Substance: FAMOTIDINE
  20. FLUCONAZOLE [Concomitant]
     Active Substance: FLUCONAZOLE
  21. FUROSEMIDE [Concomitant]
     Active Substance: FUROSEMIDE
     Route: 065
  22. HYDROCORTISONE [Concomitant]
     Active Substance: HYDROCORTISONE
  23. MAGNESIUM [Concomitant]
     Active Substance: MAGNESIUM
  24. MEROPENEM [Concomitant]
     Active Substance: MEROPENEM
  25. METHYLPREDNISOLONE SODIUM SUCCINATE [Concomitant]
     Active Substance: METHYLPREDNISOLONE SODIUM SUCCINATE
  26. METOCLOPRAMIDE [Concomitant]
     Active Substance: METOCLOPRAMIDE
  27. MORPHINE [Concomitant]
     Active Substance: MORPHINE
  28. MYCAMINE [Concomitant]
     Active Substance: MICAFUNGIN SODIUM
  29. ONDANSETRON [Concomitant]
     Active Substance: ONDANSETRON
  30. PENTAM [Concomitant]
     Active Substance: PENTAMIDINE ISETHIONATE
  31. PIPERACILLIN SODIUM\TAZOBACTAM SODIUM [Concomitant]
     Active Substance: PIPERACILLIN SODIUM\TAZOBACTAM SODIUM
  32. POLYETHYLENE GLYCOL [Concomitant]
     Active Substance: POLYETHYLENE GLYCOL
  33. ANTI-THYMOCYTE GLOBULIN (RABBIT) NOS [Concomitant]
     Active Substance: LAPINE T-LYMPHOCYTE IMMUNE GLOBULIN
  34. SODIUM [Concomitant]
     Active Substance: SODIUM
  35. SODIUM PHOSPHATE [Concomitant]
     Active Substance: SODIUM PHOSPHATE
  36. TOBRAMYCIN [Concomitant]
     Active Substance: TOBRAMYCIN
  37. SULFAMETHOXAZOLE\TRIMETHOPRIM [Concomitant]
     Active Substance: SULFAMETHOXAZOLE\TRIMETHOPRIM
  38. URSODIOL [Concomitant]
     Active Substance: URSODIOL
  39. VANCOMYCIN [Concomitant]
     Active Substance: VANCOMYCIN

REACTIONS (1)
  - Aplastic anaemia [Recovered/Resolved]
